FAERS Safety Report 8548027-2 (Version None)
Quarter: 2012Q3

REPORT INFORMATION
  Report Type: 
  Country: None (occurrence: None)
  Receive Date: 20120730
  Receipt Date: 20120720
  Transmission Date: 20120928
  Serious: Yes (Other)
  Sender: FDA-Public Use
  Company Number: CA-ROCHE-GNE281888

PATIENT
  Sex: Male
  Weight: 95.102 kg

DRUGS (4)
  1. XOLAIR [Suspect]
     Dosage: 300 MG, 1/MONTH
     Route: 058
     Dates: start: 20100317
  2. XOLAIR [Suspect]
     Indication: ASTHMA
     Dosage: 375 MG, UNK
     Route: 058
     Dates: start: 20070207
  3. XOLAIR [Suspect]
     Dosage: 300 MG, 1/MONTH
     Route: 058
     Dates: start: 20070207
  4. XOLAIR [Suspect]
     Dosage: 300 MG, 1/MONTH
     Route: 058
     Dates: start: 20090902

REACTIONS (11)
  - LUNG INFECTION [None]
  - PRODUCTIVE COUGH [None]
  - RHINORRHOEA [None]
  - UPPER RESPIRATORY TRACT INFECTION [None]
  - BRONCHITIS [None]
  - NASAL POLYPS [None]
  - NASOPHARYNGITIS [None]
  - WHEEZING [None]
  - DYSPNOEA [None]
  - NASAL CONGESTION [None]
  - COUGH [None]
